FAERS Safety Report 9800585 (Version 1)
Quarter: 2014Q1

REPORT INFORMATION
  Report Type: Report from Study
  Country: US (occurrence: US)
  Receive Date: 20140107
  Receipt Date: 20140107
  Transmission Date: 20141002
  Serious: Yes (Other)
  Sender: FDA-Public Use
  Company Number: US-ROCHE-1327791

PATIENT
  Sex: Female

DRUGS (11)
  1. XOLAIR [Suspect]
     Indication: ASTHMA
     Route: 065
     Dates: start: 201306, end: 201310
  2. ADVAIR [Concomitant]
     Dosage: INHALATION AEROSOL. 2 PUFFS INHALATIAN BID
     Route: 065
  3. ALBUTEROL [Concomitant]
     Dosage: /3ML. INH. SOL. 2.5MG=3ML PRN NEBULATION INHAL Q4H
     Route: 065
  4. ALBUTEROL INHALER [Concomitant]
     Dosage: /PUFF. 2 PUFFS Q4H
     Route: 065
  5. ALLEGRA [Concomitant]
     Dosage: 1 TABLET ORAL DAILY
     Route: 048
  6. ALVESCO [Concomitant]
     Dosage: INHALATION. 1 PUFF QHS
     Route: 065
  7. ASTEPRO [Concomitant]
     Dosage: NASAL SPRAY. 1 SPRAY INTRANASAL DAILY
     Route: 045
  8. ELIDEL [Concomitant]
     Dosage: TOPICAL CREAM. APPLY TOPICALLY BID
     Route: 061
  9. NASONEX [Concomitant]
     Dosage: /INHALATION NASAL SPRAY. 1 SPRAY INTRANASAL DAILY
     Route: 045
  10. PREDNISONE [Concomitant]
     Dosage: 60MG=3 TABLETS. 3 TABLETS ORAL DAILY X1DAY. 2 TABLET ORAL DAILY X3DAYS. THEN 1 TABLET ORAL DAILY X3
     Route: 048
  11. SINGULAIR [Concomitant]
     Dosage: ORALLY QHS
     Route: 048

REACTIONS (13)
  - Chest pain [Unknown]
  - Asthma [Unknown]
  - Increased tendency to bruise [Unknown]
  - Dyspnoea [Unknown]
  - Chest discomfort [Unknown]
  - Insomnia [Unknown]
  - Heart rate increased [Unknown]
  - Respiratory rate increased [Unknown]
  - Oropharyngeal pain [Unknown]
  - Cough [Unknown]
  - Pain [Unknown]
  - Chest discomfort [Unknown]
  - Dyspnoea [Unknown]
